FAERS Safety Report 8071906-X (Version None)
Quarter: 2012Q1

REPORT INFORMATION
  Report Type: 
  Country: None (occurrence: None)
  Receive Date: 20120119
  Receipt Date: 20120106
  Transmission Date: 20120608
  Serious: Yes (Hospitalization)
  Sender: FDA-Public Use
  Company Number: 2012-0062

PATIENT
  Age: 85 Year
  Sex: Female

DRUGS (6)
  1. CILOXAN [Concomitant]
  2. PRESTOLE (DYAZIDE) [Concomitant]
  3. PRAVASTATIN SODIQUE (PRAVASTATIN) [Concomitant]
  4. SOMATULINE L.P. 90MG (LANREOTIDE AUTOGEL) (LANREOTIDE) (LANREOTIDE ACE [Suspect]
     Indication: CARCINOID TUMOUR
     Dosage: 9I0 MG (90 MG, 1 IN 28 D), SUBCUTANEOUS
     Route: 058
     Dates: start: 20110501
  5. LERCANIDIPINE [Concomitant]
  6. IMOVANE (ZOPICLONE) [Concomitant]

REACTIONS (3)
  - POLYURIA [None]
  - POLYDIPSIA [None]
  - HYPERGLYCAEMIA [None]
